FAERS Safety Report 7681358-7 (Version None)
Quarter: 2011Q3

REPORT INFORMATION
  Report Type: 
  Country: None (occurrence: None)
  Receive Date: 20110812
  Receipt Date: 20110803
  Transmission Date: 20111222
  Serious: Yes (Hospitalization)
  Sender: FDA-Public Use
  Company Number: US-B.I. PHARMACEUTICALS,INC./RIDGEFIELD-2011-BP-18214BP

PATIENT
  Age: 83 Year
  Sex: Female
  Weight: 56.69 kg

DRUGS (8)
  1. DIGOXIN [Concomitant]
  2. ARICEPT [Concomitant]
  3. DILTIAZEM CD [Concomitant]
  4. TRADJENTA [Suspect]
     Indication: DIABETES MELLITUS
     Dosage: 2.5 MG
     Route: 048
     Dates: start: 20110620, end: 20110627
  5. METOPROLOL TARTRATE [Concomitant]
  6. AVAPRO [Concomitant]
  7. OMEPRAZOLE [Concomitant]
  8. INDAPAMIDE [Concomitant]

REACTIONS (5)
  - CONFUSIONAL STATE [None]
  - DYSARTHRIA [None]
  - ASTHENIA [None]
  - ENURESIS [None]
  - ABASIA [None]
